FAERS Safety Report 6470503-7 (Version None)
Quarter: 2009Q4

REPORT INFORMATION
  Report Type: 
  Country: None (occurrence: None)
  Receive Date: 20091202
  Receipt Date: 20091202
  Transmission Date: 20100525
  Serious: Yes (Life-Threatening, Hospitalization)
  Sender: FDA-Public Use
  Company Number: None

PATIENT
  Age: 36 Year
  Sex: Female
  Weight: 81.6475 kg

DRUGS (1)
  1. LEVAQUIN [Suspect]
     Indication: WHEEZING
     Dosage: IV DRIP
     Route: 041
     Dates: start: 20010810, end: 20010818

REACTIONS (3)
  - RASH [None]
  - SCAR [None]
  - SKIN REACTION [None]
